FAERS Safety Report 18421278 (Version 3)
Quarter: 2021Q3

REPORT INFORMATION
  Report Type: Spontaneous
  Country: CA (occurrence: CA)
  Receive Date: 20201023
  Receipt Date: 20210824
  Transmission Date: 20211014
  Serious: Yes (Other)
  Sender: FDA-Public Use
  Company Number: CA-SAMSUNG BIOEPIS-SB-2020-32379

PATIENT
  Age: 61 Year
  Sex: Male
  Weight: 105 kg

DRUGS (3)
  1. INFLIXIMAB [Suspect]
     Active Substance: INFLIXIMAB
     Indication: CROHN^S DISEASE
     Route: 042
  2. AZATHIOPRINE. [Concomitant]
     Active Substance: AZATHIOPRINE
     Dosage: UNKNOWN
     Route: 065
  3. AZATHIOPRINE. [Concomitant]
     Active Substance: AZATHIOPRINE
     Indication: PRODUCT USED FOR UNKNOWN INDICATION
     Route: 065

REACTIONS (7)
  - Fistula [Recovered/Resolved]
  - Intentional product use issue [Recovered/Resolved]
  - Weight increased [Recovered/Resolved]
  - Cortical dysplasia [Recovered/Resolved]
  - Off label use [Recovered/Resolved]
  - Inappropriate schedule of product administration [Unknown]
  - Condition aggravated [Recovered/Resolved]
